FAERS Safety Report 15541475 (Version 1)
Quarter: 2018Q4

REPORT INFORMATION
  Report Type: Spontaneous
  Country: US (occurrence: US)
  Receive Date: 20181023
  Receipt Date: 20181023
  Transmission Date: 20190205
  Serious: Yes (Other)
  Sender: FDA-Public Use
  Company Number: US-SA-2018SA290708

PATIENT

DRUGS (1)
  1. LOVENOX [Suspect]
     Active Substance: ENOXAPARIN SODIUM
     Indication: CARDIOVASCULAR DISORDER
     Route: 065

REACTIONS (3)
  - Unevaluable event [Unknown]
  - Haemorrhage [Unknown]
  - Haematoma [Unknown]
